FAERS Safety Report 4336230-7 (Version None)
Quarter: 2004Q2

REPORT INFORMATION
  Report Type: 
  Country: None (occurrence: None)
  Receive Date: 20040407
  Receipt Date: 20040317
  Transmission Date: 20050107
  Serious: Yes (Hospitalization)
  Sender: FDA-Public Use
  Company Number: EWC040338551

PATIENT
  Age: 23 Year
  Sex: Male

DRUGS (3)
  1. ZYPREXA [Suspect]
     Indication: SCHIZOPHRENIA
     Dosage: 20 MG/1 DAY
     Dates: start: 20030103, end: 20040211
  2. LORAZEPAM [Concomitant]
  3. AULIN (NIMESULIDE) [Concomitant]

REACTIONS (7)
  - DRUG INEFFECTIVE [None]
  - GENERALISED OEDEMA [None]
  - OESOPHAGITIS [None]
  - PHOTOPHOBIA [None]
  - PSYCHOTIC DISORDER [None]
  - STEVENS-JOHNSON SYNDROME [None]
  - TONSILLITIS [None]
